FAERS Safety Report 9778098 (Version 1)
Quarter: 2013Q4

REPORT INFORMATION
  Report Type: Report from Study
  Country: US (occurrence: US)
  Receive Date: 20131223
  Receipt Date: 20131223
  Transmission Date: 20140711
  Serious: Yes (Other)
  Sender: FDA-Public Use
  Company Number: US-JNJFOC-20131210422

PATIENT
  Sex: Female
  Weight: 55.34 kg

DRUGS (13)
  1. REMICADE [Suspect]
     Indication: CROHN^S DISEASE
     Route: 042
  2. REMICADE [Suspect]
     Indication: COLITIS ULCERATIVE
     Route: 042
  3. NEXIUM [Concomitant]
     Indication: GASTROOESOPHAGEAL REFLUX DISEASE
     Route: 048
  4. AMLODIPINE [Concomitant]
     Route: 048
  5. TUSSIONEX [Concomitant]
     Indication: COUGH
     Route: 048
  6. ASMANEX [Concomitant]
     Indication: RESPIRATORY DISORDER
     Route: 065
  7. DIAZEPAM [Concomitant]
     Indication: ANXIETY
     Route: 048
  8. ASACOL [Concomitant]
     Indication: CROHN^S DISEASE
     Route: 048
  9. ASACOL [Concomitant]
     Indication: COLITIS ULCERATIVE
     Route: 048
  10. MECLOZINE [Concomitant]
     Indication: DIZZINESS
     Route: 048
  11. VITAMIN D [Concomitant]
     Route: 048
  12. SIMVASTATIN [Concomitant]
     Route: 048
  13. CHLORACON [Concomitant]
     Route: 048

REACTIONS (2)
  - Basal cell carcinoma [Recovered/Resolved]
  - Carcinoma in situ of skin [Recovered/Resolved]
